FAERS Safety Report 5844235-X (Version None)
Quarter: 2008Q3

REPORT INFORMATION
  Report Type: 
  Country: None (occurrence: None)
  Receive Date: 20080813
  Receipt Date: 20080808
  Transmission Date: 20090109
  Serious: Yes (Death)
  Sender: FDA-Public Use
  Company Number: IN-PFIZER INC-2008066602

PATIENT
  Sex: Male
  Weight: 61 kg

DRUGS (7)
  1. IRINOTECAN HCL [Suspect]
     Indication: COLORECTAL CANCER METASTATIC
     Route: 042
  2. BLINDED SU11248 (SU011248) [Suspect]
     Indication: COLORECTAL CANCER METASTATIC
     Route: 048
  3. CALCIUM FOLINATE [Suspect]
     Indication: COLORECTAL CANCER METASTATIC
     Route: 042
  4. FLUOROURACIL [Suspect]
     Indication: COLORECTAL CANCER METASTATIC
     Route: 042
  5. FLUOROURACIL [Suspect]
     Route: 042
  6. CYPROHEPTADINE HCL [Concomitant]
     Route: 048
  7. DOMPERIDONE/PANTOPRAZOLE [Concomitant]
     Route: 048
     Dates: start: 20080528

REACTIONS (1)
  - DEATH [None]
